FAERS Safety Report 10012297 (Version 1)
Quarter: 2014Q1

REPORT INFORMATION
  Report Type: Spontaneous
  Country: IT (occurrence: IT)
  Receive Date: 20140314
  Receipt Date: 20140314
  Transmission Date: 20141002
  Serious: Yes (Hospitalization)
  Sender: FDA-Public Use
  Company Number: IT-SA-2014SA029528

PATIENT
  Age: 91 Year
  Sex: Female

DRUGS (9)
  1. LASIX [Suspect]
     Indication: CARDIAC FAILURE
     Route: 048
     Dates: start: 20140205, end: 20140208
  2. PANTORC [Concomitant]
     Route: 048
  3. CARDIOASPIRIN [Concomitant]
     Route: 048
  4. LYRICA [Concomitant]
     Route: 048
  5. CONGESCOR [Concomitant]
     Route: 048
  6. TAPAZOLE [Concomitant]
     Route: 048
  7. TRIATEC [Concomitant]
     Route: 048
  8. CLEXANE [Concomitant]
     Route: 058
  9. ZANEDIP [Concomitant]
     Route: 048

REACTIONS (3)
  - Dyspnoea [Unknown]
  - Wheezing [Unknown]
  - Hypokalaemia [Unknown]
